FAERS Safety Report 17897058 (Version 2)
Quarter: 2020Q3

REPORT INFORMATION
  Report Type: Spontaneous
  Country: IE (occurrence: IE)
  Receive Date: 20200615
  Receipt Date: 20200710
  Transmission Date: 20201103
  Serious: Yes (Other)
  Sender: FDA-Public Use
  Company Number: IE-IGSA-SR10010478

PATIENT
  Age: 18 Year
  Sex: Male

DRUGS (5)
  1. CYCLOPHOSPHAMIDE. [Concomitant]
     Active Substance: CYCLOPHOSPHAMIDE
     Indication: GOODPASTURE^S SYNDROME
  2. PREDNISOLONE. [Concomitant]
     Active Substance: PREDNISOLONE
     Indication: GOODPASTURE^S SYNDROME
     Dosage: UNK
     Route: 048
  3. RITUXIMAB. [Suspect]
     Active Substance: RITUXIMAB
     Indication: GOODPASTURE^S SYNDROME
     Dosage: 1 GRAM
     Route: 042
  4. METHYLPREDNISOLONE. [Concomitant]
     Active Substance: METHYLPREDNISOLONE
     Indication: GOODPASTURE^S SYNDROME
     Dosage: UNK
     Route: 042
  5. HUMAN NORMAL IMMUNOGLOBULIN (IV) [Suspect]
     Active Substance: HUMAN IMMUNOGLOBULIN G
     Indication: IMMUNOGLOBULINS DECREASED
     Dosage: UNK
     Route: 042

REACTIONS (4)
  - Off label use [Unknown]
  - Generalised tonic-clonic seizure [Recovered/Resolved]
  - Headache [Recovering/Resolving]
  - Posterior reversible encephalopathy syndrome [Recovering/Resolving]
